FAERS Safety Report 6260016-X (Version None)
Quarter: 2009Q3

REPORT INFORMATION
  Report Type: 
  Country: None (occurrence: None)
  Receive Date: 20090708
  Receipt Date: 20090316
  Transmission Date: 20100115
  Serious: No
  Sender: FDA-Public Use
  Company Number: US-BAYER-200916065NA

PATIENT
  Age: 23 Year
  Sex: Female

DRUGS (1)
  1. MIRENA [Suspect]
     Indication: CONTRACEPTION
     Dosage: CONTINUOUS DELIVERY
     Route: 015
     Dates: start: 20080501

REACTIONS (6)
  - AMENORRHOEA [None]
  - BACK PAIN [None]
  - BREAST TENDERNESS [None]
  - CARPAL TUNNEL SYNDROME [None]
  - HEADACHE [None]
  - OEDEMA PERIPHERAL [None]
